FAERS Safety Report 7319221-3 (Version None)
Quarter: 2011Q1

REPORT INFORMATION
  Report Type: 
  Country: None (occurrence: None)
  Receive Date: 20110216
  Receipt Date: 20110201
  Transmission Date: 20110831
  Serious: Yes (Death, Hospitalization)
  Sender: FDA-Public Use
  Company Number: 622123

PATIENT
  Age: 68 Year
  Sex: Female

DRUGS (2)
  1. METHOTREXATE [Suspect]
  2. (ETANERCEPT) [Suspect]
     Dosage: 50 MG MILLIGRAM(S)

REACTIONS (2)
  - COMPUTERISED TOMOGRAM ABNORMAL [None]
  - DYSPNOEA [None]
